FAERS Safety Report 24574921 (Version 1)
Quarter: 2024Q4

REPORT INFORMATION
  Report Type: Spontaneous
  Country: US (occurrence: US)
  Receive Date: 20241104
  Receipt Date: 20241104
  Transmission Date: 20250115
  Serious: Yes (Other)
  Sender: TEVA
  Company Number: US-TEVA-VS-3258872

PATIENT
  Age: 67 Year
  Sex: Male

DRUGS (4)
  1. AUSTEDO XR [Suspect]
     Active Substance: DEUTETRABENAZINE
     Indication: Tardive dyskinesia
     Dosage: STRENGTH: 12 MG / 18 MG / 24 MG / 30 MG (TITRATION KIT)
     Route: 065
     Dates: start: 202409
  2. AUSTEDO XR [Suspect]
     Active Substance: DEUTETRABENAZINE
     Indication: Tardive dyskinesia
     Dosage: STRENGTH: 12 MG / 18 MG / 24 MG / 30 MG (TITRATION KIT)
     Route: 065
     Dates: start: 2024
  3. AUSTEDO XR [Suspect]
     Active Substance: DEUTETRABENAZINE
     Indication: Tardive dyskinesia
     Dosage: STRENGTH: 12 MG / 18 MG / 24 MG / 30 MG (TITRATION KIT)
     Route: 065
     Dates: start: 2024
  4. AUSTEDO XR [Suspect]
     Active Substance: DEUTETRABENAZINE
     Indication: Tardive dyskinesia
     Dosage: STRENGTH: 12 MG / 18 MG / 24 MG / 30 MG (TITRATION KIT)
     Route: 065
     Dates: start: 2024

REACTIONS (5)
  - Tardive dyskinesia [Unknown]
  - Depression [Unknown]
  - Drug ineffective [Unknown]
  - Inability to afford medication [Unknown]
  - Insurance issue [Unknown]

NARRATIVE: CASE EVENT DATE: 20240101
